FAERS Safety Report 17246309 (Version 1)
Quarter: 2020Q1

REPORT INFORMATION
  Report Type: Spontaneous
  Country: FR (occurrence: FR)
  Receive Date: 20200108
  Receipt Date: 20200108
  Transmission Date: 20200409
  Serious: Yes (Other)
  Sender: FDA-Public Use
  Company Number: FR-PFIZER INC-2020002376

PATIENT
  Age: 70 Year
  Sex: Female

DRUGS (4)
  1. ZITHROMAX [Suspect]
     Active Substance: AZITHROMYCIN DIHYDRATE
     Indication: ATYPICAL MYCOBACTERIAL INFECTION
     Dosage: 250 MG, 1X/DAY
     Route: 048
     Dates: start: 20181002
  2. AMIKACIN. [Suspect]
     Active Substance: AMIKACIN
     Indication: ATYPICAL MYCOBACTERIAL INFECTION
     Dosage: 500 MG, 1X/DAY
     Dates: start: 20181002
  3. LAMPRENE [Suspect]
     Active Substance: CLOFAZIMINE
     Indication: ATYPICAL MYCOBACTERIAL INFECTION
     Dosage: 1 DF, 1X/DAY
     Route: 048
     Dates: start: 20181002
  4. RIFABUTIN. [Suspect]
     Active Substance: RIFABUTIN
     Indication: ATYPICAL MYCOBACTERIAL INFECTION
     Dosage: 600 MG, 1X/DAY
     Route: 048
     Dates: start: 20190904

REACTIONS (1)
  - Retinal artery occlusion [Not Recovered/Not Resolved]

NARRATIVE: CASE EVENT DATE: 20191001
